FAERS Safety Report 5414969-X (Version None)
Quarter: 2007Q3

REPORT INFORMATION
  Report Type: 
  Country: None (occurrence: None)
  Receive Date: 20070813
  Receipt Date: 20070813
  Transmission Date: 20080115
  Serious: Yes (Hospitalization)
  Sender: FDA-Public Use
  Company Number: None

PATIENT
  Age: 64 Year

DRUGS (3)
  1. RITUXAN [Suspect]
     Dosage: 1000MG Q4MO
     Dates: start: 20070307
  2. RITUXAN [Suspect]
     Dosage: 1000MG Q4MO
     Dates: start: 20070321
  3. RITUXAN [Suspect]
     Dosage: 1000MG Q4MO
     Dates: start: 20070718

REACTIONS (2)
  - PNEUMONIA [None]
  - URINARY TRACT INFECTION [None]
